FAERS Safety Report 11707246 (Version 1)
Quarter: 2015Q4

REPORT INFORMATION
  Report Type: Spontaneous
  Country: IT (occurrence: IT)
  Receive Date: 20151106
  Receipt Date: 20151106
  Transmission Date: 20160304
  Serious: Yes (Hospitalization)
  Sender: FDA-Public Use
  Company Number: IT-GLAXOSMITHKLINE-IT2015GSK157929

PATIENT
  Age: 75 Year
  Sex: Male

DRUGS (12)
  1. LUVION [Concomitant]
     Active Substance: CANRENONE
     Dosage: UNK
  2. NORVASC [Concomitant]
     Active Substance: AMLODIPINE BESYLATE
     Dosage: UNK
  3. VALPROIC ACID. [Concomitant]
     Active Substance: VALPROIC ACID
     Dosage: 1500 MG, UNK
  4. CARDIOASPIRIN [Concomitant]
     Active Substance: ASPIRIN
     Dosage: UNK
  5. TORVAST [Concomitant]
     Active Substance: ATORVASTATIN
     Dosage: UNK
  6. FUROSEMIDE. [Concomitant]
     Active Substance: FUROSEMIDE
     Dosage: UNK
  7. LAMOTRIGINE. [Suspect]
     Active Substance: LAMOTRIGINE
     Indication: EPILEPSY
     Dosage: 150 MG, QD
     Route: 048
  8. TRIATEC [Concomitant]
     Active Substance: RAMIPRIL
     Dosage: UNK
  9. AVODART [Concomitant]
     Active Substance: DUTASTERIDE
     Dosage: UNK
  10. CATAPRESAN [Concomitant]
     Active Substance: CLONIDINE
     Dosage: UNK
  11. GARDENALE [Concomitant]
     Active Substance: PHENOBARBITAL
     Dosage: 50 MG, UNK
  12. ARIXTRA [Concomitant]
     Active Substance: FONDAPARINUX SODIUM
     Dosage: UNK

REACTIONS (2)
  - Erythema [Recovered/Resolved]
  - Urticaria [Recovered/Resolved]

NARRATIVE: CASE EVENT DATE: 20150816
